FAERS Safety Report 19506522 (Version 1)
Quarter: 2021Q3

REPORT INFORMATION
  Report Type: Spontaneous
  Country: US (occurrence: US)
  Receive Date: 20210708
  Receipt Date: 20210708
  Transmission Date: 20211014
  Serious: Yes (Hospitalization)
  Sender: FDA-Public Use
  Company Number: None

PATIENT
  Age: 73 Year
  Sex: Male
  Weight: 107.1 kg

DRUGS (10)
  1. INCRUSE ELLIPTA 62.5MCG INH DAILY [Concomitant]
  2. RITUXAN [Suspect]
     Active Substance: RITUXIMAB
     Indication: RHEUMATOID ARTHRITIS
     Dosage: ?          OTHER FREQUENCY:TWICE A MONTH;?
     Route: 042
     Dates: start: 20210629
  3. SOLU?MEDROL 100MG IV PRE?MED [Concomitant]
  4. LISINOPRIL 10MG BID [Concomitant]
  5. MAPAP 1000MG PO PRE?MED [Concomitant]
  6. SYMBICORT 80?4.5 MCG INH BID [Concomitant]
  7. OMEPRAZOLE 40MG PO DAILY [Concomitant]
  8. METFORMINN 1000MG BID [Concomitant]
  9. ASA 81 MG PO DAILY [Concomitant]
  10. ATORVASTATIN CALCIUM 10MG PO DAILY [Concomitant]

REACTIONS (6)
  - Chest discomfort [None]
  - Blood potassium increased [None]
  - Oropharyngeal pain [None]
  - Renal disorder [None]
  - Dyspnoea [None]
  - Swelling face [None]

NARRATIVE: CASE EVENT DATE: 20210630
